FAERS Safety Report 6402646-8 (Version None)
Quarter: 2009Q4

REPORT INFORMATION
  Report Type: 
  Country: None (occurrence: None)
  Receive Date: 20091009
  Receipt Date: 20091001
  Transmission Date: 20100525
  Serious: Yes (Other)
  Sender: FDA-Public Use
  Company Number: ADR36742009

PATIENT
  Age: 17 Year
  Sex: Female

DRUGS (4)
  1. LAMOTRIGINE [Suspect]
     Indication: BORDERLINE PERSONALITY DISORDER
     Dosage: 100 MG - BID, ORAL
     Route: 048
     Dates: start: 20080926
  2. LAMOTRIGINE [Suspect]
     Indication: MOOD SWINGS
     Dosage: 100 MG - BID, ORAL
     Route: 048
     Dates: start: 20080926
  3. CITALOPRAM HYDROBROMIDE [Concomitant]
  4. DIAZEPAM [Concomitant]

REACTIONS (3)
  - ANAEMIA [None]
  - LEUKOPENIA [None]
  - NEUTROPENIA [None]
